FAERS Safety Report 5032943-2 (Version None)
Quarter: 2006Q2

REPORT INFORMATION
  Report Type: 
  Country: None (occurrence: None)
  Receive Date: 20060620
  Receipt Date: 20060614
  Transmission Date: 20061013
  Serious: Yes (Hospitalization)
  Sender: FDA-Public Use
  Company Number: 200613685BWH

PATIENT
  Age: 47 Year
  Sex: Male
  Weight: 73.5 kg

DRUGS (4)
  1. SORAFENIB [Suspect]
     Indication: RENAL CELL CARCINOMA STAGE UNSPECIFIED
     Dosage: 400 MG, BID, ORAL
     Route: 048
     Dates: start: 20050328, end: 20060508
  2. INTERFERON ALPHA-2B               (INTERFERON ALFA-2B) [Suspect]
     Indication: RENAL CELL CARCINOMA STAGE UNSPECIFIED
     Dosage: 10.0X10 (6) IU, TIW, SUBCUTANEOUS
     Route: 058
     Dates: start: 20050328, end: 20060508
  3. LEVITRA [Concomitant]
  4. DICYCLOMINE [Concomitant]

REACTIONS (8)
  - ABDOMINAL PAIN [None]
  - APPENDICITIS [None]
  - APPENDICITIS PERFORATED [None]
  - APPENDIX DISORDER [None]
  - ASCITES [None]
  - NAUSEA [None]
  - PYREXIA [None]
  - VOMITING [None]
